FAERS Safety Report 12194397 (Version 1)
Quarter: 2016Q1

REPORT INFORMATION
  Report Type: Spontaneous
  Country: TR (occurrence: TR)
  Receive Date: 20160321
  Receipt Date: 20160321
  Transmission Date: 20160526
  Serious: Yes (Hospitalization)
  Sender: FDA-Public Use
  Company Number: TR-MYLANLABS-2016M1011865

PATIENT

DRUGS (1)
  1. TERBINAFINE. [Suspect]
     Active Substance: TERBINAFINE
     Indication: ONYCHOMYCOSIS
     Dosage: 250 MG/DAY
     Route: 065

REACTIONS (6)
  - Anal abscess [Unknown]
  - Infection reactivation [Unknown]
  - Herpes zoster [Unknown]
  - Aplastic anaemia [Recovered/Resolved]
  - Device related infection [Unknown]
  - Aspergillus infection [Unknown]
